FAERS Safety Report 24391410 (Version 1)
Quarter: 2024Q4

REPORT INFORMATION
  Report Type: Spontaneous
  Country: US (occurrence: US)
  Receive Date: 20241003
  Receipt Date: 20241003
  Transmission Date: 20250114
  Serious: Yes (Hospitalization)
  Sender: PFIZER
  Company Number: US-PFIZER INC-202400265890

PATIENT
  Age: 77 Year
  Sex: Male
  Weight: 106.58 kg

DRUGS (6)
  1. VYNDAMAX [Suspect]
     Active Substance: TAFAMIDIS
     Indication: Cardiac amyloidosis
     Dosage: UNK
     Dates: end: 202409
  2. VYNDAMAX [Suspect]
     Active Substance: TAFAMIDIS
     Dosage: DOSE UNKNOWN TAKES 1 GEL CAP EVERY MORNING SWALLOWS IT
     Dates: start: 202409
  3. ELIQUIS [Concomitant]
     Active Substance: APIXABAN
     Dosage: UNK
  4. PLAVIX [Concomitant]
     Active Substance: CLOPIDOGREL BISULFATE
     Dosage: UNK
  5. FINASTERIDE [Concomitant]
     Active Substance: FINASTERIDE
     Dosage: UNK
  6. TORSEMIDE [Concomitant]
     Active Substance: TORSEMIDE
     Dosage: 20MG EVERY OTHER DAY.

REACTIONS (3)
  - Colectomy [Recovering/Resolving]
  - Ileostomy [Unknown]
  - Urinary tract infection [Unknown]

NARRATIVE: CASE EVENT DATE: 20240911
